FAERS Safety Report 16561149 (Version 1)
Quarter: 2019Q3

REPORT INFORMATION
  Report Type: Spontaneous
  Country: FR (occurrence: FR)
  Receive Date: 20190711
  Receipt Date: 20190711
  Transmission Date: 20191004
  Serious: Yes (Other)
  Sender: FDA-Public Use
  Company Number: PHHY2019FR159768

PATIENT
  Age: 79 Year
  Sex: Female

DRUGS (1)
  1. EXELON [Suspect]
     Active Substance: RIVASTIGMINE TARTRATE
     Indication: DEMENTIA ALZHEIMER^S TYPE
     Dosage: 1 DF, QD (A LA POSOLOGIE DE 4.6 MG AUGMENTE A 9.5 MG EN SEPTEMBRE 2015)
     Route: 061
     Dates: start: 20150707, end: 201807

REACTIONS (4)
  - Product administration interrupted [Recovered/Resolved]
  - Condition aggravated [Not Recovered/Not Resolved]
  - Apathy [Not Recovered/Not Resolved]
  - Irritability [Not Recovered/Not Resolved]

NARRATIVE: CASE EVENT DATE: 201807
